FAERS Safety Report 16943395 (Version 1)
Quarter: 2019Q4

REPORT INFORMATION
  Report Type: Report from Study
  Country: US (occurrence: US)
  Receive Date: 20191022
  Receipt Date: 20191022
  Transmission Date: 20200122
  Serious: Yes (Other)
  Sender: FDA-Public Use
  Company Number: US-EMD SERONO-E2B_80020579

PATIENT
  Sex: Male

DRUGS (2)
  1. METFORMIN [Concomitant]
     Active Substance: METFORMIN HYDROCHLORIDE
     Indication: TYPE 2 DIABETES MELLITUS
  2. REBIF [Suspect]
     Active Substance: INTERFERON BETA-1A
     Indication: MULTIPLE SCLEROSIS
     Route: 058
     Dates: start: 20030929

REACTIONS (11)
  - Bursal operation [Unknown]
  - Fall [Unknown]
  - Joint injury [Unknown]
  - Blood glucose increased [Unknown]
  - Drug ineffective [Unknown]
  - Diabetic foot [Not Recovered/Not Resolved]
  - Malaise [Unknown]
  - Cognitive disorder [Not Recovered/Not Resolved]
  - Balance disorder [Recovering/Resolving]
  - Thinking abnormal [Recovering/Resolving]
  - Impaired healing [Unknown]

NARRATIVE: CASE EVENT DATE: 2008
